FAERS Safety Report 7494404-0 (Version None)
Quarter: 2011Q2

REPORT INFORMATION
  Report Type: 
  Country: None (occurrence: None)
  Receive Date: 20110520
  Receipt Date: 20110512
  Transmission Date: 20111010
  Serious: Yes (Other)
  Sender: FDA-Public Use
  Company Number: CA-PURDUE-CAN-2011-0001827

PATIENT
  Sex: Female

DRUGS (10)
  1. BUTRANS [Suspect]
     Indication: PAIN
     Dosage: UNK
     Dates: end: 20101108
  2. FENTANYL [Suspect]
     Indication: PAIN
     Dosage: 25 MCG, Q1H
     Route: 062
     Dates: start: 20050101, end: 20101021
  3. CLONAZEPAM [Concomitant]
     Dosage: UNK
  4. ULTRAM [Suspect]
     Indication: PAIN
     Dosage: 150 MG, DAILY PRN
     Route: 048
     Dates: start: 20101202
  5. BUTRANS [Suspect]
     Indication: PAIN
     Dosage: 20 MCG, Q1H
     Route: 062
     Dates: start: 20101108, end: 20101202
  6. FENTANYL [Suspect]
     Indication: PAIN
     Dosage: 100 MG, DAILY
     Route: 048
  7. BUTRANS [Suspect]
     Indication: PAIN
     Dosage: 20 MCG, Q1H
     Route: 062
     Dates: start: 20101202, end: 20110106
  8. FENTANYL [Suspect]
     Dosage: 12 MCG, Q1H
     Route: 062
     Dates: start: 20101021
  9. CLONAZEPAM [Concomitant]
     Indication: INSOMNIA
     Dosage: UNK, HS
     Route: 048
     Dates: start: 20050101
  10. BUTRANS [Suspect]
     Dosage: 10 MCG, Q1H
     Route: 062
     Dates: start: 20101021, end: 20101108

REACTIONS (5)
  - DRUG INTOLERANCE [None]
  - GAIT DISTURBANCE [None]
  - NAUSEA [None]
  - FORMICATION [None]
  - DRUG INEFFECTIVE [None]
